FAERS Safety Report 20903114 (Version 2)
Quarter: 2023Q4

REPORT INFORMATION
  Report Type: Spontaneous
  Country: US (occurrence: US)
  Receive Date: 20220601
  Receipt Date: 20231129
  Transmission Date: 20240109
  Serious: No
  Sender: FDA-Public Use
  Company Number: US-SEPTODONT-2022006742

PATIENT

DRUGS (2)
  1. EPINEPHRINE\LIDOCAINE [Suspect]
     Active Substance: EPINEPHRINE\LIDOCAINE
     Indication: Dental local anaesthesia
     Route: 004
     Dates: start: 20220127, end: 20220127
  2. ARTICAINE HYDROCHLORIDE\EPINEPHRINE BITARTRATE [Concomitant]
     Active Substance: ARTICAINE HYDROCHLORIDE\EPINEPHRINE BITARTRATE
     Indication: Dental local anaesthesia
     Route: 004
     Dates: start: 20220127, end: 20220127

REACTIONS (1)
  - Drug ineffective [Recovered/Resolved]

NARRATIVE: CASE EVENT DATE: 20220127
